FAERS Safety Report 7902207-5 (Version None)
Quarter: 2011Q4

REPORT INFORMATION
  Report Type: 
  Country: None (occurrence: None)
  Receive Date: 20111108
  Receipt Date: 20111028
  Transmission Date: 20120403
  Serious: Yes (Hospitalization, Other)
  Sender: FDA-Public Use
  Company Number: US-MYLANLABS-2011S1022511

PATIENT
  Age: 56 Year
  Sex: Male
  Weight: 88 kg

DRUGS (10)
  1. AMITRIPTYLINE HCL [Suspect]
     Indication: PRODUCT USED FOR UNKNOWN INDICATION
     Dates: end: 20110810
  2. LOVENOX [Concomitant]
  3. PEG-INTRON [Suspect]
     Dates: start: 20110810
  4. OXYCONTIN [Concomitant]
  5. PEG-INTRON [Suspect]
     Indication: PRODUCT USED FOR UNKNOWN INDICATION
     Dates: start: 20110809, end: 20110809
  6. TRAZODONE HYDROCHLORIDE [Suspect]
     Indication: PRODUCT USED FOR UNKNOWN INDICATION
     Dates: end: 20110810
  7. METOPROLOL [Concomitant]
  8. NEXIUM [Concomitant]
  9. RIBAVIRIN [Suspect]
     Indication: PRODUCT USED FOR UNKNOWN INDICATION
     Route: 048
     Dates: start: 20110809
  10. COLACE [Concomitant]

REACTIONS (6)
  - HYPERTENSION [None]
  - PALPITATIONS [None]
  - LONG QT SYNDROME [None]
  - INFLUENZA LIKE ILLNESS [None]
  - CHEST PAIN [None]
  - MYALGIA [None]
